FAERS Safety Report 19634509 (Version 1)
Quarter: 2021Q3

REPORT INFORMATION
  Report Type: Spontaneous
  Country: US (occurrence: US)
  Receive Date: 20210730
  Receipt Date: 20210730
  Transmission Date: 20211014
  Serious: No
  Sender: FDA-Public Use
  Company Number: US-ORGANON-O2107USA002329

PATIENT
  Age: 30 Year
  Sex: Female
  Weight: 160.57 kg

DRUGS (1)
  1. NEXPLANON [Suspect]
     Active Substance: ETONOGESTREL
     Dosage: 68 MG, 1 ROD, LEFT ARM
     Route: 059
     Dates: start: 201911

REACTIONS (4)
  - Medical device site discomfort [Recovered/Resolved]
  - Device breakage [Not Recovered/Not Resolved]
  - Complication of device removal [Not Recovered/Not Resolved]
  - Intentional device use issue [Unknown]

NARRATIVE: CASE EVENT DATE: 20210712
